FAERS Safety Report 12374591 (Version 2)
Quarter: 2016Q2

REPORT INFORMATION
  Report Type: Spontaneous
  Country: NG (occurrence: NG)
  Receive Date: 20160517
  Receipt Date: 20160527
  Transmission Date: 20160815
  Serious: Yes (Hospitalization, Other)
  Sender: FDA-Public Use
  Company Number: PHHY2016NG066839

PATIENT
  Age: 16 Year
  Sex: Male
  Weight: 55.5 kg

DRUGS (14)
  1. PREDNISOLON [Suspect]
     Active Substance: PREDNISOLONE
     Indication: NEPHROTIC SYNDROME
     Dosage: 30 MG, QOD
     Route: 048
     Dates: start: 20151213
  2. AMLODIPINE [Concomitant]
     Active Substance: AMLODIPINE BESYLATE
     Indication: HYPERTENSION
     Dosage: 10 MG, QD
     Route: 048
  3. HYDROCHLOROTHIAZIDE. [Concomitant]
     Active Substance: HYDROCHLOROTHIAZIDE
     Indication: OEDEMA
     Dosage: 50 MG, TID
     Route: 048
  4. FRUSEMIDE [Concomitant]
     Active Substance: FUROSEMIDE
     Indication: OEDEMA
     Dosage: 40 MG, QD
     Route: 042
  5. NEORAL [Suspect]
     Active Substance: CYCLOSPORINE
     Dosage: 50 MG, BID
     Route: 048
     Dates: start: 20160107, end: 20160111
  6. CLINDAMYCIN [Concomitant]
     Active Substance: CLINDAMYCIN\CLINDAMYCIN PHOSPHATE
     Dosage: 150 MG, BID
     Route: 048
     Dates: start: 20160101
  7. ADCO-OFLOXACIN [Concomitant]
     Indication: SEPSIS
     Dosage: 200 MG, BID
     Route: 048
  8. AMIKACIN [Concomitant]
     Active Substance: AMIKACIN
     Indication: BACTERIAL SEPSIS
     Dosage: 500 MG, QD
     Route: 042
     Dates: start: 20151228, end: 20151229
  9. CALCIMAX [Concomitant]
     Active Substance: CALCIUM CARBONATE\CHOLECALCIFEROL
     Indication: HYPOCALCAEMIA
     Dosage: 600 MG, BID
     Route: 048
  10. NEORAL [Suspect]
     Active Substance: CYCLOSPORINE
     Indication: NEPHROTIC SYNDROME
     Dosage: 50 MG, BID
     Route: 048
     Dates: start: 20151214, end: 20151221
  11. CLINDAMYCIN [Concomitant]
     Active Substance: CLINDAMYCIN\CLINDAMYCIN PHOSPHATE
     Indication: BACTERIAL SEPSIS
     Dosage: 80 MG, Q6H
     Route: 042
     Dates: start: 20151228, end: 20151231
  12. ATENOLOL. [Concomitant]
     Active Substance: ATENOLOL
     Indication: PALPITATIONS
     Dosage: 25 MG, QD
     Route: 048
  13. MANNITOL. [Concomitant]
     Active Substance: MANNITOL
     Indication: OEDEMA
     Dosage: 40 MG, QD
     Route: 042
  14. SPIRONOLACTONE. [Concomitant]
     Active Substance: SPIRONOLACTONE
     Indication: OEDEMA
     Dosage: 50 MG, TID
     Route: 048

REACTIONS (8)
  - Acute kidney injury [Recovering/Resolving]
  - Pyrexia [Recovered/Resolved]
  - Oliguria [Unknown]
  - Generalised oedema [Not Recovered/Not Resolved]
  - Malaise [Recovering/Resolving]
  - Dyspnoea [Recovered/Resolved]
  - Sepsis [Recovered/Resolved]
  - Malaise [Recovered/Resolved]

NARRATIVE: CASE EVENT DATE: 20151218
